FAERS Safety Report 5466602-9 (Version None)
Quarter: 2007Q3

REPORT INFORMATION
  Report Type: 
  Country: None (occurrence: None)
  Receive Date: 20070925
  Receipt Date: 20070920
  Transmission Date: 20080115
  Serious: Yes (Other)
  Sender: FDA-Public Use
  Company Number: PHEH2007US11694

PATIENT
  Age: 50 Year
  Sex: Male

DRUGS (2)
  1. TRILEPTAL [Suspect]
     Indication: BIPOLAR DISORDER
     Dosage: 300 MG, BID
     Route: 048
     Dates: start: 20070806, end: 20070813
  2. INVEGA [Suspect]
     Indication: BIPOLAR DISORDER
     Dosage: 6 MG /DAY
     Route: 048
     Dates: start: 20070806, end: 20070813

REACTIONS (1)
  - URINARY RETENTION [None]
